FAERS Safety Report 5290593-7 (Version None)
Quarter: 2007Q2

REPORT INFORMATION
  Report Type: 
  Country: None (occurrence: None)
  Receive Date: 20070405
  Receipt Date: 20070405
  Transmission Date: 20071010
  Serious: Yes (Hospitalization)
  Sender: FDA-Public Use
  Company Number: None

PATIENT
  Age: 61 Year
  Sex: Female
  Weight: 59 kg

DRUGS (13)
  1. DIGOXIN [Suspect]
     Dosage: 0.125MG PO Q3D
     Route: 048
  2. CLONAZI [Concomitant]
  3. ESCITAL [Concomitant]
  4. ALPRAZ [Concomitant]
  5. CORVEDILOL [Concomitant]
  6. POTASSIUM CHLORIDE [Concomitant]
  7. LACTULOSE [Concomitant]
  8. DOCUSATE [Concomitant]
  9. LISINOPRIL [Concomitant]
  10. VENLAFAX [Concomitant]
  11. TRIAMCIN [Concomitant]
  12. AU/TC/SALM [Concomitant]
  13. ESOMEP. [Concomitant]

REACTIONS (4)
  - DISEASE RECURRENCE [None]
  - OVERDOSE [None]
  - THERAPEUTIC AGENT TOXICITY [None]
  - VENTRICULAR TACHYCARDIA [None]
